FAERS Safety Report 8937235 (Version 1)
Quarter: 2012Q4

REPORT INFORMATION
  Report Type: 
  Country: NZ (occurrence: NZ)
  Receive Date: 20121203
  Receipt Date: 20121203
  Transmission Date: 20130627
  Serious: Yes (Other)
  Sender: FDA-Public Use
  Company Number: PHHY2012NZ107891

PATIENT
  Sex: Male

DRUGS (2)
  1. CLOZARIL [Suspect]
     Dates: start: 20120518
  2. DIAZEPAM [Concomitant]

REACTIONS (6)
  - Intentional self-injury [Unknown]
  - Drug dependence [Unknown]
  - Malaise [Unknown]
  - Weight decreased [Unknown]
  - Anxiety [Unknown]
  - Nausea [Unknown]
